FAERS Safety Report 8937192 (Version 1)
Quarter: 2012Q4

REPORT INFORMATION
  Report Type: Spontaneous
  Country: US (occurrence: None)
  Receive Date: 20121128
  Receipt Date: 20121128
  Transmission Date: 20130627
  Serious: Yes (Hospitalization)
  Sender: FDA-Public Use
  Company Number: None

PATIENT
  Age: 73 Year
  Sex: Female
  Weight: 80.9 kg

DRUGS (10)
  1. TEGRETOL [Suspect]
     Indication: TRIGEMINAL NEURALGIA
     Dosage: CHRONIC
200MG   BID   PO
     Route: 048
  2. ACTONEL [Concomitant]
  3. GABAPENTIN [Concomitant]
  4. BENICAR [Concomitant]
  5. OMEPRAZOLE [Concomitant]
  6. CALCIUM+VIT D [Concomitant]
  7. XALATAN [Concomitant]
  8. METOPROLOL ER [Concomitant]
  9. LIPITOR [Concomitant]
  10. CITALPRAM [Concomitant]

REACTIONS (4)
  - Inappropriate antidiuretic hormone secretion [None]
  - Inappropriate schedule of drug administration [None]
  - Spinal compression fracture [None]
  - Hyponatraemia [None]
